FAERS Safety Report 15761019 (Version 1)
Quarter: 2018Q4

REPORT INFORMATION
  Report Type: Spontaneous
  Country: US (occurrence: US)
  Receive Date: 20181226
  Receipt Date: 20181226
  Transmission Date: 20190205
  Serious: No
  Sender: FDA-Public Use
  Company Number: US-PFIZER INC-2018524008

PATIENT
  Age: 68 Year
  Sex: Female
  Weight: 49 kg

DRUGS (2)
  1. IBRANCE [Suspect]
     Active Substance: PALBOCICLIB
     Indication: BONE CANCER
  2. IBRANCE [Suspect]
     Active Substance: PALBOCICLIB
     Indication: HEPATIC CANCER
     Dosage: 125 MG, 1X/DAY
     Route: 048
     Dates: start: 201810

REACTIONS (1)
  - Emotional disorder [Unknown]

NARRATIVE: CASE EVENT DATE: 2018
